FAERS Safety Report 25337555 (Version 1)
Quarter: 2025Q2

REPORT INFORMATION
  Report Type: Spontaneous
  Country: TH (occurrence: None)
  Receive Date: 20250520
  Receipt Date: 20250520
  Transmission Date: 20250717
  Serious: Yes (Other)
  Sender: INCYTE
  Company Number: TH-002147023-NVSC2025TH079356

PATIENT
  Age: 60 Year

DRUGS (2)
  1. RUXOLITINIB [Suspect]
     Active Substance: RUXOLITINIB
     Indication: Polycythaemia vera
     Dosage: 2 DOSAGE FORM, BID
  2. HYDROXYUREA [Concomitant]
     Active Substance: HYDROXYUREA
     Indication: Product used for unknown indication
     Route: 065

REACTIONS (4)
  - Tuberculosis [Unknown]
  - Platelet count increased [Unknown]
  - Haematocrit decreased [Unknown]
  - Asthenia [Unknown]
